FAERS Safety Report 5473303-X (Version None)
Quarter: 2007Q3

REPORT INFORMATION
  Report Type: 
  Country: None (occurrence: None)
  Receive Date: 20070927
  Receipt Date: 20070912
  Transmission Date: 20080115
  Serious: Yes (Hospitalization)
  Sender: FDA-Public Use
  Company Number: 2007S1008838

PATIENT
  Sex: Female

DRUGS (1)
  1. CYSTAGON [Suspect]
     Indication: CYSTINOSIS
     Dosage: 450 MG; 3 TIMES A DAY; ORAL
     Route: 048

REACTIONS (1)
  - SKIN PAPILLOMA [None]
